FAERS Safety Report 17097916 (Version 1)
Quarter: 2019Q4

REPORT INFORMATION
  Report Type: Spontaneous
  Country: JP (occurrence: JP)
  Receive Date: 20191202
  Receipt Date: 20191202
  Transmission Date: 20200122
  Serious: Yes (Hospitalization)
  Sender: FDA-Public Use
  Company Number: JP-PFIZER INC-2019518727

PATIENT
  Age: 75 Year
  Sex: Female

DRUGS (1)
  1. MEROPENEM. [Suspect]
     Active Substance: MEROPENEM
     Dosage: UNK

REACTIONS (9)
  - Encephalitis autoimmune [Unknown]
  - Deep vein thrombosis [Unknown]
  - Aphasia [Unknown]
  - Cerebral infarction [Unknown]
  - Fall [Unknown]
  - Autoimmune demyelinating disease [Unknown]
  - Quadriplegia [Unknown]
  - Cerebrospinal fluid leakage [Unknown]
  - Postoperative wound infection [Unknown]
